FAERS Safety Report 9201961 (Version 1)
Quarter: 2013Q2

REPORT INFORMATION
  Report Type: Spontaneous
  Country: US (occurrence: US)
  Receive Date: 20130401
  Receipt Date: 20130401
  Transmission Date: 20140414
  Serious: Yes (Hospitalization, Other)
  Sender: FDA-Public Use
  Company Number: US-ELI_LILLY_AND_COMPANY-US201203003602

PATIENT
  Sex: Male

DRUGS (6)
  1. EFFIENT [Suspect]
     Indication: STENT PLACEMENT
     Dosage: 10 MG, QD
     Dates: start: 20111214, end: 201212
  2. BABY ASPIRIN [Concomitant]
  3. SIMVASTATIN [Concomitant]
  4. CALCIUM [Concomitant]
  5. VITAMIN C [Concomitant]
  6. VITAMIN D [Concomitant]

REACTIONS (4)
  - Thrombosis [Unknown]
  - Impaired healing [Unknown]
  - Bleeding time prolonged [Unknown]
  - Drug dose omission [Recovered/Resolved]
